FAERS Safety Report 15658056 (Version 1)
Quarter: 2018Q4

REPORT INFORMATION
  Report Type: Spontaneous
  Country: US (occurrence: US)
  Receive Date: 20181126
  Receipt Date: 20181126
  Transmission Date: 20190205
  Serious: Yes (Death, Hospitalization)
  Sender: FDA-Public Use
  Company Number: US-TEVA-2018-US-979673

PATIENT
  Sex: Male

DRUGS (1)
  1. METRONIDAZOLE. [Suspect]
     Active Substance: METRONIDAZOLE
     Route: 065

REACTIONS (3)
  - Pancreatic carcinoma [Fatal]
  - Abdominal pain lower [Unknown]
  - Metastases to liver [Fatal]
